FAERS Safety Report 17058973 (Version 2)
Quarter: 2019Q4

REPORT INFORMATION
  Report Type: Spontaneous
  Country: US (occurrence: US)
  Receive Date: 20191121
  Receipt Date: 20191226
  Transmission Date: 20200122
  Serious: Yes (Death)
  Sender: FDA-Public Use
  Company Number: US-AMNEAL PHARMACEUTICALS-2019-AMRX-02679

PATIENT
  Age: 11 Month
  Sex: Female

DRUGS (2)
  1. BOSENTAN. [Suspect]
     Active Substance: BOSENTAN
     Indication: PRODUCT USED FOR UNKNOWN INDICATION
     Dosage: 2.5 MILLIGRAM, BID
     Route: 065
     Dates: start: 20190228, end: 2019
  2. BOSENTAN. [Suspect]
     Active Substance: BOSENTAN
     Dosage: 8.75 MILLIGRAM, BID, INCREASED DOSE
     Route: 065
     Dates: start: 2019

REACTIONS (2)
  - Cerebral atrophy [Fatal]
  - Haemorrhage intracranial [Fatal]

NARRATIVE: CASE EVENT DATE: 20191003
